FAERS Safety Report 8011734-4 (Version None)
Quarter: 2011Q4

REPORT INFORMATION
  Report Type: 
  Country: None (occurrence: None)
  Receive Date: 20111228
  Receipt Date: 20111222
  Transmission Date: 20120403
  Serious: No
  Sender: FDA-Public Use
  Company Number: US-BAYER-2011-123743

PATIENT

DRUGS (2)
  1. IBUPROFEN [Concomitant]
  2. ALEVE (CAPLET) [Suspect]
     Route: 048

REACTIONS (1)
  - DRUG INEFFECTIVE [None]
